FAERS Safety Report 11031588 (Version 1)
Quarter: 2015Q2

REPORT INFORMATION
  Report Type: Spontaneous
  Country: US (occurrence: US)
  Receive Date: 20150415
  Receipt Date: 20150415
  Transmission Date: 20150821
  Serious: Yes (Hospitalization)
  Sender: FDA-Public Use
  Company Number: US-LUNDBECK-DKLU1111131

PATIENT
  Age: 1 Year
  Sex: Male

DRUGS (1)
  1. SABRIL [Suspect]
     Active Substance: VIGABATRIN
     Indication: ILL-DEFINED DISORDER
     Route: 048
     Dates: start: 20150206

REACTIONS (1)
  - Pneumonia viral [Unknown]

NARRATIVE: CASE EVENT DATE: 20150315
